FAERS Safety Report 8651586 (Version 3)
Quarter: 2013Q2

REPORT INFORMATION
  Report Type: Spontaneous
  Country: US (occurrence: US)
  Receive Date: 20120706
  Receipt Date: 20130405
  Transmission Date: 20140414
  Serious: Yes (Other)
  Sender: FDA-Public Use
  Company Number: US-BAYER-2012-064791

PATIENT
  Age: 33 Year
  Sex: Female
  Weight: 74 kg

DRUGS (3)
  1. MIRENA [Suspect]
     Indication: CONTRACEPTION
     Dosage: 20 MCG/24HR, CONT
     Route: 015
     Dates: start: 200709, end: 20120621
  2. KEFLEX [Concomitant]
  3. ADVIL +AFRIN [Concomitant]

REACTIONS (6)
  - Pregnancy with contraceptive device [Recovered/Resolved]
  - Device difficult to use [None]
  - Subchorionic haematoma [Recovered/Resolved]
  - Gestational diabetes [Not Recovered/Not Resolved]
  - Drug ineffective [None]
  - Subchorionic haemorrhage [Recovered/Resolved]
